FAERS Safety Report 6374042-3 (Version None)
Quarter: 2009Q3

REPORT INFORMATION
  Report Type: 
  Country: None (occurrence: None)
  Receive Date: 20090924
  Receipt Date: 20090709
  Transmission Date: 20100115
  Serious: No
  Sender: FDA-Public Use
  Company Number: US-ASTRAZENECA-2009UW19354

PATIENT
  Age: 425 Month
  Sex: Female

DRUGS (1)
  1. SEROQUEL [Suspect]
     Route: 048
     Dates: start: 20010101

REACTIONS (3)
  - BLEPHAROSPASM [None]
  - EYE MOVEMENT DISORDER [None]
  - SWOLLEN TONGUE [None]
